FAERS Safety Report 8914294 (Version 2)
Quarter: 2012Q4

REPORT INFORMATION
  Report Type: 
  Country: CH (occurrence: CH)
  Receive Date: 20121119
  Receipt Date: 20121213
  Transmission Date: 20130627
  Serious: No
  Sender: FDA-Public Use
  Company Number: CH-ELI_LILLY_AND_COMPANY-CH201211001815

PATIENT
  Age: 43 Year
  Sex: Male

DRUGS (5)
  1. CYMBALTA [Suspect]
     Dosage: UNK UNK, unknown
     Dates: start: 201104, end: 201211
  2. COAPROVEL [Concomitant]
     Dosage: UNK
     Dates: start: 2010
  3. CONCOR [Concomitant]
     Dosage: 5 mg, qd
     Dates: start: 2010
  4. ZANIDIP [Concomitant]
     Dosage: UNK
     Dates: start: 201211
  5. NOVALGIN                           /06276704/ [Concomitant]
     Dosage: UNK, prn
     Dates: start: 201211

REACTIONS (1)
  - Hepatic steatosis [Unknown]
